FAERS Safety Report 9150197 (Version 1)
Quarter: 2013Q1

REPORT INFORMATION
  Report Type: Spontaneous
  Country: PT (occurrence: PT)
  Receive Date: 20130308
  Receipt Date: 20130308
  Transmission Date: 20140127
  Serious: Yes (Other)
  Sender: FDA-Public Use
  Company Number: PT-009507513-1303PRT002920

PATIENT
  Age: 87 Year
  Sex: Female

DRUGS (1)
  1. CILASTATIN [Suspect]
     Indication: GANGRENE
     Route: 040
     Dates: start: 20130221, end: 20130227

REACTIONS (1)
  - Epilepsy [Recovered/Resolved]
